FAERS Safety Report 14079343 (Version 2)
Quarter: 2017Q4

REPORT INFORMATION
  Report Type: Report from Study
  Country: IT (occurrence: IT)
  Receive Date: 20171012
  Receipt Date: 20171127
  Transmission Date: 20180321
  Serious: Yes (Hospitalization, Other)
  Sender: FDA-Public Use
  Company Number: PHHY2017IT148353

PATIENT
  Age: 12 Year
  Sex: Female
  Weight: 34.5 kg

DRUGS (4)
  1. TRAMADOL. [Concomitant]
     Active Substance: TRAMADOL
     Indication: PAIN
     Dosage: 15 DRPX3/DAY
     Route: 048
     Dates: start: 20161121, end: 20161124
  2. COTRIMOXAZOL [Concomitant]
     Active Substance: SULFAMETHOXAZOLE\TRIMETHOPRIM
     Indication: ANTIFUNGAL PROPHYLAXIS
     Dosage: 25 MG/KG X 3 ONCE A WEEK
     Route: 048
     Dates: start: 20161019
  3. COTRIMOXAZOL [Concomitant]
     Active Substance: SULFAMETHOXAZOLE\TRIMETHOPRIM
     Dosage: (160 + 300 MG)
     Route: 048
  4. GLIVEC [Suspect]
     Active Substance: IMATINIB MESYLATE
     Indication: PRODUCT USED FOR UNKNOWN INDICATION
     Dosage: 400 MG, BID (307 MG/MG)
     Route: 048
     Dates: start: 20161103, end: 20161124

REACTIONS (6)
  - Lung infection [Recovered/Resolved]
  - Lung abscess [Recovering/Resolving]
  - Bone marrow failure [Unknown]
  - Pyrexia [Recovered/Resolved]
  - Fungal infection [Recovered/Resolved]
  - Cough [Unknown]

NARRATIVE: CASE EVENT DATE: 20161124
